FAERS Safety Report 7880431-8 (Version None)
Quarter: 2011Q4

REPORT INFORMATION
  Report Type: 
  Country: None (occurrence: None)
  Receive Date: 20111101
  Receipt Date: 20111026
  Transmission Date: 20120403
  Serious: Yes (Hospitalization, Other)
  Sender: FDA-Public Use
  Company Number: PHHY2011US32473

PATIENT
  Age: 54 Year
  Sex: Female
  Weight: 70 kg

DRUGS (12)
  1. MODAFINIL [Concomitant]
     Indication: MULTIPLE SCLEROSIS
  2. LOVAZA [Concomitant]
     Dosage: 2000 MG (DAILY)
     Route: 048
     Dates: start: 20040102
  3. BACLOFEN [Concomitant]
     Indication: MULTIPLE SCLEROSIS
  4. TIZANIDINE HYDROCHLORIDE [Concomitant]
  5. METHYLPHENIDATE [Concomitant]
     Dosage: 3 X 20 MG/24 HR DAILY
     Route: 048
     Dates: start: 20020101
  6. LOVAZA [Concomitant]
     Dosage: 4000 MG, UNK
     Route: 048
     Dates: start: 20060102
  7. HYDROCODONE BITARTRATE [Concomitant]
     Indication: PAIN
     Dosage: 500 MG, UNK
     Dates: start: 19960212, end: 20090618
  8. DETROL [Concomitant]
     Indication: BLADDER DISORDER
     Dosage: 4 MG (DAILY)
     Route: 048
     Dates: start: 20010102, end: 20100901
  9. KADIAN [Concomitant]
     Indication: BLADDER DISORDER
  10. EXTAVIA [Suspect]
     Indication: MULTIPLE SCLEROSIS
     Dosage: 0.3 MG, DAILY
     Route: 058
     Dates: start: 19950402
  11. RESTASIS [Concomitant]
  12. EYE DROPS [Concomitant]

REACTIONS (3)
  - ARTHRALGIA [None]
  - VISUAL FIELD DEFECT [None]
  - NAUSEA [None]
